FAERS Safety Report 9070945 (Version 4)
Quarter: 2013Q4

REPORT INFORMATION
  Report Type: Spontaneous
  Country: JP (occurrence: JP)
  Receive Date: 20130129
  Receipt Date: 20131001
  Transmission Date: 20140711
  Serious: Yes (Hospitalization)
  Sender: FDA-Public Use
  Company Number: JP-GLAXOSMITHKLINE-B0845771A

PATIENT
  Age: 78 Year
  Sex: Female
  Weight: 45 kg

DRUGS (13)
  1. LAMICTAL [Suspect]
     Indication: BIPOLAR DISORDER
     Dosage: 25MG PER DAY
     Route: 048
     Dates: start: 20121029, end: 201211
  2. LAMICTAL [Suspect]
     Indication: BIPOLAR DISORDER
     Dosage: 50MG PER DAY
     Route: 048
     Dates: start: 201211, end: 20121109
  3. PAXIL [Suspect]
     Indication: PRODUCT USED FOR UNKNOWN INDICATION
     Dosage: 12.5MG PER DAY
     Route: 048
     Dates: start: 20121015
  4. TRAMCET [Suspect]
     Indication: PRODUCT USED FOR UNKNOWN INDICATION
     Route: 048
     Dates: end: 20120916
  5. TRAMCET [Suspect]
     Indication: PRODUCT USED FOR UNKNOWN INDICATION
     Route: 048
     Dates: start: 20120917
  6. LEXAPRO [Suspect]
     Indication: DEPRESSION
     Dosage: 10MG PER DAY
     Route: 048
     Dates: start: 20121104, end: 20121109
  7. LYRICA [Concomitant]
     Indication: PAIN
     Dosage: 75MG TWICE PER DAY
     Route: 048
     Dates: start: 20121104, end: 20121109
  8. MILMAG [Concomitant]
     Route: 048
  9. GASRICK D [Concomitant]
     Route: 048
  10. MEILAX [Concomitant]
     Route: 048
  11. LITHIUM CARBONATE [Concomitant]
     Indication: AFFECT LABILITY
     Dosage: 100MG TWICE PER DAY
     Route: 048
     Dates: start: 20121104, end: 20121109
  12. RILMAZAFONE HYDROCHLORIDE [Concomitant]
     Dosage: 2MG PER DAY
     Route: 048
     Dates: start: 20121104, end: 20121109
  13. THYRADIN S [Concomitant]
     Indication: HYPOTHYROIDISM
     Dosage: 75MCG PER DAY
     Route: 048
     Dates: start: 20121104, end: 20121130

REACTIONS (29)
  - Rash generalised [Recovered/Resolved]
  - Generalised erythema [Recovered/Resolved]
  - Hypersensitivity [Recovered/Resolved]
  - Nausea [Unknown]
  - Restlessness [Unknown]
  - Red blood cell count decreased [Unknown]
  - White blood cell count decreased [Unknown]
  - Decreased appetite [Unknown]
  - Vomiting [Unknown]
  - Oropharyngeal pain [Unknown]
  - Nasopharyngitis [Unknown]
  - Arthralgia [Unknown]
  - Gait disturbance [Unknown]
  - Pain in extremity [Unknown]
  - Drug eruption [Unknown]
  - Urticaria [Unknown]
  - Pyrexia [Unknown]
  - Pruritus [Unknown]
  - Ocular hyperaemia [Unknown]
  - Malaise [Unknown]
  - Blood creatine phosphokinase increased [Unknown]
  - Aspartate aminotransferase increased [Unknown]
  - Alanine aminotransferase increased [Unknown]
  - Erythema multiforme [Unknown]
  - Drug reaction with eosinophilia and systemic symptoms [Unknown]
  - Skin disorder [Unknown]
  - Rash [Unknown]
  - Drug interaction [Unknown]
  - Inappropriate schedule of drug administration [Unknown]
